FAERS Safety Report 4532075-3 (Version None)
Quarter: 2004Q4

REPORT INFORMATION
  Report Type: 
  Country: None (occurrence: None)
  Receive Date: 20041220
  Receipt Date: 20041122
  Transmission Date: 20050328
  Serious: Yes (Other)
  Sender: FDA-Public Use
  Company Number: US-BRISTOL-MYERS SQUIBB COMPANY-12785408

PATIENT
  Sex: Female
  Weight: 2 kg

DRUGS (1)
  1. ABILIFY [Suspect]

REACTIONS (1)
  - PREMATURE BABY [None]
